FAERS Safety Report 8400301-6 (Version None)
Quarter: 2012Q2

REPORT INFORMATION
  Report Type: 
  Country: None (occurrence: None)
  Receive Date: 20120525
  Receipt Date: 20120512
  Transmission Date: 20120825
  Serious: Yes (Other)
  Sender: FDA-Public Use
  Company Number: 2012AP001437

PATIENT
  Age: 6 Month
  Sex: Male

DRUGS (1)
  1. RANITIDINE [Suspect]
     Indication: GASTROOESOPHAGEAL REFLUX DISEASE
     Dosage: 22.5 MG/KG;QD

REACTIONS (8)
  - NEUROTOXICITY [None]
  - DRUG PRESCRIBING ERROR [None]
  - IRRITABILITY [None]
  - POOR QUALITY SLEEP [None]
  - OVERDOSE [None]
  - HEAD TITUBATION [None]
  - RESTLESSNESS [None]
  - TREMOR [None]
